FAERS Safety Report 6273884-2 (Version None)
Quarter: 2009Q3

REPORT INFORMATION
  Report Type: 
  Country: None (occurrence: None)
  Receive Date: 20090716
  Receipt Date: 20090709
  Transmission Date: 20100115
  Serious: Yes (Disabling)
  Sender: FDA-Public Use
  Company Number: 2008AG2565

PATIENT
  Age: 69 Year
  Sex: Male

DRUGS (3)
  1. SIMVASTATIN [Suspect]
     Indication: HYPERCHOLESTEROLAEMIA
     Dosage: 40 MG
  2. HEXANURAL (BENDROFLUMETHIAZIDE AND POTASSIUM) [Concomitant]
  3. ALLOPURINOL [Concomitant]

REACTIONS (1)
  - HYPOAESTHESIA [None]
